FAERS Safety Report 4893592-X (Version None)
Quarter: 2006Q1

REPORT INFORMATION
  Report Type: 
  Country: None (occurrence: None)
  Receive Date: 20060127
  Receipt Date: 20051026
  Transmission Date: 20060701
  Serious: Yes (Hospitalization, Other)
  Sender: FDA-Public Use
  Company Number: PHBS2005JP15837

PATIENT
  Age: 77 Year
  Sex: Male
  Weight: 54 kg

DRUGS (9)
  1. GLEEVEC [Suspect]
     Indication: GASTROINTESTINAL STROMAL TUMOUR
     Dosage: 400 MG/D
     Route: 048
     Dates: start: 20050801, end: 20050808
  2. GLEEVEC [Suspect]
     Dosage: 400 MG/D
     Route: 048
     Dates: start: 20050909
  3. ASTOMIN [Concomitant]
     Dosage: 30 MG/D
     Route: 048
  4. AMBROXOL HYDROCHLORIDE [Concomitant]
     Dosage: 15 MG/D
     Route: 048
  5. NATEGLINIDE [Concomitant]
     Dosage: 270 MG/D
     Route: 048
     Dates: end: 20050809
  6. BASEN [Concomitant]
     Dosage: 0.9 MG/D
     Route: 048
     Dates: end: 20050809
  7. BEZATOL - SLOW RELEASE [Concomitant]
     Dosage: 200 MG/D
     Route: 048
  8. ASVERIN [Concomitant]
     Dosage: 1.8 MG/D
     Route: 048
  9. DIHYDROCODEINE PHOSPHATE [Concomitant]
     Dosage: 3 G/D
     Route: 048
     Dates: end: 20050809

REACTIONS (7)
  - ABDOMINAL CAVITY DRAINAGE [None]
  - ABDOMINAL DISTENSION [None]
  - LAPAROTOMY [None]
  - PERITONITIS [None]
  - PYREXIA [None]
  - TUMOUR LYSIS SYNDROME [None]
  - TUMOUR NECROSIS [None]
